FAERS Safety Report 4761111-4 (Version None)
Quarter: 2005Q3

REPORT INFORMATION
  Report Type: 
  Country: None (occurrence: None)
  Receive Date: 20050901
  Receipt Date: 20050503
  Transmission Date: 20060218
  Serious: No
  Sender: FDA-Public Use
  Company Number: 2005FR-00243

PATIENT
  Age: 52 Year
  Sex: Female

DRUGS (2)
  1. FLUOXETINE [Suspect]
     Indication: DEPRESSION
     Dosage: 20 MG OD ORAL
     Route: 048
     Dates: start: 19990202
  2. TERBINAFINE [Suspect]
     Indication: NAIL INFECTION
     Dosage: 250 MG OD ORAL
     Route: 048
     Dates: start: 20050401, end: 20050404

REACTIONS (1)
  - DEPRESSION [None]
